FAERS Safety Report 25944050 (Version 1)
Quarter: 2025Q4

REPORT INFORMATION
  Report Type: Spontaneous
  Country: US (occurrence: US)
  Receive Date: 20251021
  Receipt Date: 20251021
  Transmission Date: 20260118
  Serious: No
  Sender: PADAGIS
  Company Number: US-PADAGIS-2025PAD01265

PATIENT

DRUGS (1)
  1. KETOCONAZOLE [Suspect]
     Active Substance: KETOCONAZOLE
     Indication: Product used for unknown indication
     Dosage: USING FOR ABOUT 3 MONTHS, TWICE A WEEK
     Route: 065

REACTIONS (2)
  - Skin exfoliation [Unknown]
  - Inappropriate schedule of product administration [Unknown]
